FAERS Safety Report 22377651 (Version 1)
Quarter: 2023Q2

REPORT INFORMATION
  Report Type: Spontaneous
  Country: US (occurrence: US)
  Receive Date: 20230529
  Receipt Date: 20230529
  Transmission Date: 20230722
  Serious: No
  Sender: FDA-Public Use
  Company Number: US-GSK-US2023AMR058166

PATIENT

DRUGS (1)
  1. FLOVENT DISKUS [Suspect]
     Active Substance: FLUTICASONE PROPIONATE
     Indication: Product used for unknown indication
     Dosage: 100 UG
     Dates: end: 20230318

REACTIONS (8)
  - Asthma [Unknown]
  - Cough [Recovered/Resolved]
  - Heart rate increased [Recovered/Resolved]
  - Dysphagia [Unknown]
  - Mucosal discolouration [Unknown]
  - Condition aggravated [Unknown]
  - Product communication issue [Unknown]
  - Product complaint [Unknown]
